FAERS Safety Report 25005253 (Version 1)
Quarter: 2025Q1

REPORT INFORMATION
  Report Type: Spontaneous
  Country: US (occurrence: None)
  Receive Date: 20250224
  Receipt Date: 20250224
  Transmission Date: 20250409
  Serious: No
  Sender: FDA-CTU
  Company Number: None

PATIENT
  Age: 56 Year
  Sex: Female
  Weight: 87 kg

DRUGS (1)
  1. OCREVUS [Suspect]
     Active Substance: OCRELIZUMAB
     Indication: Multiple sclerosis
     Route: 042
     Dates: start: 20240730, end: 20250131

REACTIONS (5)
  - Infusion related reaction [None]
  - Pharyngeal swelling [None]
  - Throat irritation [None]
  - Infusion site pain [None]
  - Infusion site swelling [None]

NARRATIVE: CASE EVENT DATE: 20250131
